FAERS Safety Report 10178577 (Version 2)
Quarter: 2014Q2

REPORT INFORMATION
  Report Type: Spontaneous
  Country: FR (occurrence: FR)
  Receive Date: 20140519
  Receipt Date: 20140623
  Transmission Date: 20141212
  Serious: Yes (Life-Threatening, Hospitalization)
  Sender: FDA-Public Use
  Company Number: FR-009507513-1405FRA007484

PATIENT
  Age: 74 Year
  Sex: Male

DRUGS (1)
  1. INVANZ [Suspect]
     Indication: ENTEROBACTER INFECTION
     Dosage: 500 MG, QD
     Route: 042
     Dates: start: 201403, end: 20140320

REACTIONS (3)
  - Encephalopathy [Recovered/Resolved]
  - Abnormal behaviour [Recovered/Resolved]
  - Confusional state [Recovered/Resolved]
